FAERS Safety Report 18411053 (Version 2)
Quarter: 2020Q4

REPORT INFORMATION
  Report Type: Spontaneous
  Country: US (occurrence: US)
  Receive Date: 20201021
  Receipt Date: 20201127
  Transmission Date: 20210114
  Serious: Yes (Other)
  Sender: FDA-Public Use
  Company Number: US-PFIZER INC-2020406405

PATIENT
  Age: 55 Year
  Sex: Female

DRUGS (1)
  1. XELJANZ XR [Suspect]
     Active Substance: TOFACITINIB CITRATE
     Indication: RHEUMATOID ARTHRITIS
     Dosage: 11 MG, 1X/DAY
     Route: 048
     Dates: start: 2018

REACTIONS (8)
  - Therapeutic response unexpected [Unknown]
  - Intraocular pressure increased [Unknown]
  - Pre-existing condition improved [Unknown]
  - Condition aggravated [Unknown]
  - Musculoskeletal discomfort [Unknown]
  - Depressed mood [Recovering/Resolving]
  - Rheumatoid arthritis [Unknown]
  - Anxiety [Recovering/Resolving]
